FAERS Safety Report 12997414 (Version 3)
Quarter: 2016Q4

REPORT INFORMATION
  Report Type: Spontaneous
  Country: US (occurrence: US)
  Receive Date: 20161205
  Receipt Date: 20161214
  Transmission Date: 20170207
  Serious: Yes (Other)
  Sender: FDA-Public Use
  Company Number: US-AUROBINDO-AUR-APL-2016-14813

PATIENT
  Age: 85 Year
  Sex: Female

DRUGS (1)
  1. PREDNISONE. [Suspect]
     Active Substance: PREDNISONE
     Indication: RHEUMATOID ARTHRITIS
     Dosage: UNK
     Route: 065

REACTIONS (6)
  - Pneumatosis intestinalis [Unknown]
  - Abdominal pain [Unknown]
  - Blood lactic acid increased [Recovered/Resolved]
  - Condition aggravated [Unknown]
  - Nausea [Unknown]
  - Vomiting [Unknown]
